FAERS Safety Report 9280471 (Version 1)
Quarter: 2013Q1

REPORT INFORMATION
  Report Type: Spontaneous
  Country: NL (occurrence: None)
  Receive Date: 20130219
  Receipt Date: 20130219
  Transmission Date: 20140127
  Serious: Yes (Hospitalization)
  Sender: FDA-Public Use
  Company Number: 220509

PATIENT
  Sex: Female

DRUGS (1)
  1. INNOHEP (TINZAPARIN SODIUM) (10 IU/ML) [Suspect]
     Indication: JUGULAR VEIN THROMBOSIS
     Dosage: 18000 IU, 1 IN 1 D
     Route: 042
     Dates: start: 2011

REACTIONS (3)
  - Exposure during pregnancy [None]
  - Premature labour [None]
  - Incorrect drug administration duration [None]
